FAERS Safety Report 23946460 (Version 2)
Quarter: 2024Q2

REPORT INFORMATION
  Report Type: Report from Study
  Country: US (occurrence: US)
  Receive Date: 20240606
  Receipt Date: 20240617
  Transmission Date: 20240716
  Serious: Yes (Hospitalization)
  Sender: FDA-Public Use
  Company Number: US-PFIZER INC-PV202400072340

PATIENT
  Age: 77 Year
  Sex: Male
  Weight: 78.1 kg

DRUGS (8)
  1. DEMEROL [Suspect]
     Active Substance: MEPERIDINE HYDROCHLORIDE
     Indication: Chills
     Dosage: UNK
     Dates: start: 20240523, end: 20240523
  2. MGD-024 [Suspect]
     Active Substance: MGD-024
     Indication: Acute myeloid leukaemia
     Dosage: 0.003 MG/KG, EVERY WEEK (QW)
     Route: 042
     Dates: start: 20240516, end: 20240516
  3. MGD-024 [Suspect]
     Active Substance: MGD-024
     Dosage: 0.011 MG/KG, EVERY WEEK (QW)
     Route: 042
     Dates: start: 20240523, end: 20240523
  4. ACETAMINOPHEN [Concomitant]
     Active Substance: ACETAMINOPHEN
     Dosage: 650 MG
     Route: 048
     Dates: start: 20240523, end: 20240523
  5. FAMOTIDINE [Concomitant]
     Active Substance: FAMOTIDINE
     Dosage: 40 MG
     Route: 048
     Dates: start: 20240523, end: 20240523
  6. DIPHENHYDRAMINE [Concomitant]
     Active Substance: DIPHENHYDRAMINE
     Dosage: 50 MG
     Route: 048
     Dates: start: 20240523, end: 20240523
  7. DEXAMETHASONE [Concomitant]
     Active Substance: DEXAMETHASONE
     Dosage: 15 MG
     Dates: start: 20240516, end: 20240516
  8. DEXAMETHASONE [Concomitant]
     Active Substance: DEXAMETHASONE
     Dosage: 20 MG
     Route: 042
     Dates: start: 20240523, end: 20240523

REACTIONS (2)
  - Febrile neutropenia [Recovered/Resolved]
  - Vomiting [Recovered/Resolved]

NARRATIVE: CASE EVENT DATE: 20240523
